FAERS Safety Report 4951940-6 (Version None)
Quarter: 2006Q1

REPORT INFORMATION
  Report Type: 
  Country: None (occurrence: None)
  Receive Date: 20060320
  Receipt Date: 20060308
  Transmission Date: 20060701
  Serious: Yes (Other)
  Sender: FDA-Public Use
  Company Number: 2006030851

PATIENT
  Age: 59 Year
  Sex: Male
  Weight: 100 kg

DRUGS (13)
  1. LYRICA [Suspect]
     Indication: PAIN
     Dosage: 45 MG, ORAL
     Route: 048
     Dates: start: 20060213, end: 20060216
  2. AQUEOUS CREAM (EMULSIFYING WAX, PARAFFIN, LIQUID, WHITE SOFT PARAFFIN) [Concomitant]
  3. FUROSEMIDE [Concomitant]
  4. MESALAMINE [Concomitant]
  5. PREDNISOLONE [Concomitant]
  6. ASPIRIN [Concomitant]
  7. ISOSORBIDE MONONITRATE [Concomitant]
  8. NOVORAPID (INSULIN ASPART) [Concomitant]
  9. SIMVASTATIN [Concomitant]
  10. INSULIN DETEMIR (INSULIN DETEMIR) [Concomitant]
  11. LISINOPRIL [Concomitant]
  12. ACETAMINOPHEN [Concomitant]
  13. TRAMADOL HCL [Concomitant]

REACTIONS (3)
  - DYSPHASIA [None]
  - HEADACHE [None]
  - HYPERTENSION [None]
